FAERS Safety Report 11517574 (Version 2)
Quarter: 2015Q4

REPORT INFORMATION
  Report Type: Report from Study
  Country: US (occurrence: US)
  Receive Date: 20150917
  Receipt Date: 20151016
  Transmission Date: 20160304
  Serious: Yes (Hospitalization)
  Sender: FDA-Public Use
  Company Number: US-ACTELION-A-NJ2015-114862

PATIENT
  Age: 68 Year
  Sex: Female

DRUGS (6)
  1. TRACLEER [Suspect]
     Active Substance: BOSENTAN
     Indication: PULMONARY ARTERIAL HYPERTENSION
     Dosage: UNK
     Route: 048
     Dates: start: 20130614
  2. OXYGEN. [Concomitant]
     Active Substance: OXYGEN
  3. ADCIRCA [Concomitant]
     Active Substance: TADALAFIL
  4. RIOCIGUAT [Concomitant]
     Active Substance: RIOCIGUAT
  5. REMODULIN [Concomitant]
     Active Substance: TREPROSTINIL
  6. COUMADIN [Concomitant]
     Active Substance: WARFARIN SODIUM

REACTIONS (8)
  - Fluid retention [Unknown]
  - Dyspnoea [Unknown]
  - Pulmonary veno-occlusive disease [Unknown]
  - Cardiac failure [Unknown]
  - Malaise [Unknown]
  - Cardiac failure congestive [Unknown]
  - Pulmonary hypertension [Unknown]
  - Hypoxia [Unknown]

NARRATIVE: CASE EVENT DATE: 20150304
